FAERS Safety Report 9472943 (Version 1)
Quarter: 2013Q3

REPORT INFORMATION
  Report Type: Spontaneous
  Country: US (occurrence: US)
  Receive Date: 20130823
  Receipt Date: 20130823
  Transmission Date: 20140515
  Serious: No
  Sender: FDA-Public Use
  Company Number: US-BRISTOL-MYERS SQUIBB COMPANY-17253592

PATIENT
  Age: 62 Year
  Sex: Male
  Weight: 88.43 kg

DRUGS (10)
  1. SPRYCEL [Suspect]
     Indication: CHRONIC MYELOID LEUKAEMIA
     Route: 048
     Dates: start: 20121129
  2. ASA [Concomitant]
  3. CASODEX [Concomitant]
  4. DIOVAN [Concomitant]
  5. LANTUS [Concomitant]
  6. LISINOPRIL [Concomitant]
  7. LOVASTATIN [Concomitant]
  8. METOPROLOL [Concomitant]
  9. OMEPRAZOLE [Concomitant]
  10. PLAVIX [Concomitant]

REACTIONS (1)
  - Dyspnoea [Unknown]
